FAERS Safety Report 25531259 (Version 1)
Quarter: 2025Q3

REPORT INFORMATION
  Report Type: Other
  Country: US (occurrence: US)
  Receive Date: 20250708
  Receipt Date: 20250708
  Transmission Date: 20251020
  Serious: Yes (Other)
  Sender: HLS THERAPEUTICS
  Company Number: US-HLS-202500258

PATIENT
  Age: 50 Year
  Sex: Female

DRUGS (1)
  1. CLOZAPINE [Suspect]
     Active Substance: CLOZAPINE
     Indication: Schizophrenia
     Route: 065

REACTIONS (6)
  - Labelled drug-drug interaction issue [Unknown]
  - Atrial fibrillation [Unknown]
  - Catatonia [Recovered/Resolved]
  - Hyperkalaemia [Unknown]
  - Ileus [Unknown]
  - Treatment noncompliance [Recovered/Resolved]
